FAERS Safety Report 6089588-5 (Version None)
Quarter: 2009Q1

REPORT INFORMATION
  Report Type: 
  Country: None (occurrence: None)
  Receive Date: 20090224
  Receipt Date: 20090219
  Transmission Date: 20090719
  Serious: Yes (Hospitalization)
  Sender: FDA-Public Use
  Company Number: IT-ABBOTT-09P-083-0502546-00

PATIENT
  Sex: Male

DRUGS (8)
  1. KLACID [Suspect]
     Indication: BRONCHOPNEUMONIA
     Dosage: 1 GM
     Route: 048
     Dates: start: 20090109, end: 20090119
  2. ROCEPHIN [Suspect]
     Indication: BRONCHOPNEUMONIA
     Dosage: 2 GM
     Route: 042
     Dates: start: 20090109, end: 20090119
  3. ACETYLSALICYLIC ACID SRT [Concomitant]
     Indication: DRUG USE FOR UNKNOWN INDICATION
     Dosage: 100 MG
     Route: 048
     Dates: start: 20090109
  4. COLCHICINE [Concomitant]
     Indication: DRUG USE FOR UNKNOWN INDICATION
     Dosage: 1 MG
     Route: 048
     Dates: start: 20090114
  5. NORVASC [Concomitant]
     Indication: DRUG USE FOR UNKNOWN INDICATION
     Dosage: 10 MG
     Route: 048
     Dates: start: 20090109
  6. CATAPRESAN TTS-2 [Concomitant]
     Indication: DRUG USE FOR UNKNOWN INDICATION
     Dosage: 1 UNIT
     Route: 062
     Dates: start: 20090109
  7. NITRO-DUR [Concomitant]
     Indication: DRUG USE FOR UNKNOWN INDICATION
     Dosage: 1 UNIT
     Route: 062
     Dates: start: 20090109
  8. APROVEL [Concomitant]
     Indication: DRUG USE FOR UNKNOWN INDICATION
     Dosage: 1 UNIT
     Route: 048

REACTIONS (2)
  - HYPERTRANSAMINASAEMIA [None]
  - URTICARIA [None]
